FAERS Safety Report 9840802 (Version 1)
Quarter: 2013Q4

REPORT INFORMATION
  Report Type: Spontaneous
  Country: US (occurrence: None)
  Receive Date: 20131211
  Receipt Date: 20131211
  Transmission Date: 20140711
  Serious: Yes (Hospitalization)
  Sender: FDA-Public Use
  Company Number: ALL1-2012-01167

PATIENT
  Age: 65 Year
  Sex: Male

DRUGS (6)
  1. LIALDA [Suspect]
     Indication: COLITIS ULCERATIVE
     Route: 048
  2. PREDNISONE [Suspect]
  3. LASIX (FUROSEMIDE) [Suspect]
  4. OMEPRAZOLE [Concomitant]
  5. AZATHIOPRINE [Concomitant]
  6. BUPROPION [Concomitant]

REACTIONS (1)
  - Colitis ulcerative [None]
